FAERS Safety Report 18551339 (Version 7)
Quarter: 2024Q1

REPORT INFORMATION
  Report Type: Spontaneous
  Country: US (occurrence: US)
  Receive Date: 20201126
  Receipt Date: 20240206
  Transmission Date: 20240410
  Serious: Yes (Other)
  Sender: FDA-Public Use
  Company Number: US-PFIZER INC-2020468570

PATIENT
  Age: 51 Year
  Sex: Female

DRUGS (12)
  1. DOCETAXEL [Suspect]
     Active Substance: DOCETAXEL\DOCETAXEL ANHYDROUS
     Indication: Breast cancer stage II
     Dosage: 168 MG, CYCLIC (EVERY 3 WEEKS, C1-C2)
     Dates: start: 20151111, end: 201512
  2. DOCETAXEL [Suspect]
     Active Substance: DOCETAXEL\DOCETAXEL ANHYDROUS
     Dosage: 143 MG, SINGLE (C3, 4 WEEKS)
     Dates: start: 201512, end: 201512
  3. DOCETAXEL [Suspect]
     Active Substance: DOCETAXEL\DOCETAXEL ANHYDROUS
     Dosage: 143 MG, CYCLIC (EVERY 3 WEEKS, C4-C6)
     Dates: start: 201601, end: 20160301
  4. TAXOTERE [Concomitant]
     Active Substance: DOCETAXEL
     Indication: Chemotherapy
     Dosage: UNK, CYCLIC (6 CYCLE)
     Dates: start: 20151111, end: 201603
  5. TAXOTERE [Concomitant]
     Active Substance: DOCETAXEL
     Dosage: 5040CGY IN 28FX AT 180CGY/FX (6 CYCLE)
     Dates: start: 20160418, end: 20160525
  6. CARBOPLATIN [Concomitant]
     Active Substance: CARBOPLATIN
     Indication: Chemotherapy
     Dosage: UNK, CYCLIC (6 CYCLE)
     Dates: start: 20151111, end: 201603
  7. CARBOPLATIN [Concomitant]
     Active Substance: CARBOPLATIN
     Dosage: 5040CGY IN 28FX AT 180CGY/FX (6 CYCLE)
     Dates: start: 20160418, end: 20160525
  8. HERCEPTIN [Concomitant]
     Active Substance: TRASTUZUMAB
     Indication: Chemotherapy
     Dosage: UNK, CYCLIC (6 CYCLES)
     Dates: start: 20151111, end: 201603
  9. HERCEPTIN [Concomitant]
     Active Substance: TRASTUZUMAB
     Dosage: 5040CGY IN 28FX AT 180CGY/FX, CYCLIC (6 CYCLES)
     Dates: start: 20160418, end: 20160525
  10. PERTUZUMAB [Concomitant]
     Active Substance: PERTUZUMAB
     Indication: Chemotherapy
     Dosage: UNK, CYCLIC (6 CYCLIC)
     Dates: start: 20151111, end: 201603
  11. PERTUZUMAB [Concomitant]
     Active Substance: PERTUZUMAB
     Dosage: 5040CGY IN 28FX AT 180CGY/FX, CYCLIC (6 CYCLIC)
     Dates: start: 20160418, end: 20160525
  12. PERJETA [Concomitant]
     Active Substance: PERTUZUMAB
     Indication: Chemotherapy
     Dosage: UNK

REACTIONS (7)
  - Lacrimation increased [Not Recovered/Not Resolved]
  - Dacryostenosis acquired [Not Recovered/Not Resolved]
  - Lacrimal structure injury [Not Recovered/Not Resolved]
  - Eyelid margin crusting [Unknown]
  - Ocular discomfort [Unknown]
  - Ocular hyperaemia [Unknown]
  - Eye injury [Unknown]

NARRATIVE: CASE EVENT DATE: 20151201
